FAERS Safety Report 7516819-4 (Version None)
Quarter: 2011Q2

REPORT INFORMATION
  Report Type: 
  Country: None (occurrence: None)
  Receive Date: 20110601
  Receipt Date: 20110527
  Transmission Date: 20111010
  Serious: Yes (Other)
  Sender: FDA-Public Use
  Company Number: US-MERCK-1105USA03143

PATIENT
  Sex: Male

DRUGS (1)
  1. IVEMEND [Suspect]
     Route: 042
     Dates: start: 20110401

REACTIONS (3)
  - FLUSHING [None]
  - FEELING HOT [None]
  - PRURITUS [None]
